FAERS Safety Report 4548630-0 (Version None)
Quarter: 2005Q1

REPORT INFORMATION
  Report Type: 
  Country: None (occurrence: None)
  Receive Date: 20050106
  Receipt Date: 20041229
  Transmission Date: 20050727
  Serious: Yes (Other)
  Sender: FDA-Public Use
  Company Number: K200401980

PATIENT
  Age: 35 Year
  Sex: Female
  Weight: 54.4 kg

DRUGS (1)
  1. LEVOX(LEVOTHYROXINE ) TABLET, 100MCG [Suspect]
     Indication: HYPOTHYROIDISM
     Dosage: 100 MCG, QD, ORAL
     Route: 048
     Dates: start: 20040301

REACTIONS (4)
  - ABORTION SPONTANEOUS [None]
  - AMENORRHOEA [None]
  - DRUG EXPOSURE DURING PREGNANCY [None]
  - UNINTENDED PREGNANCY [None]
